FAERS Safety Report 5217268-4 (Version None)
Quarter: 2007Q1

REPORT INFORMATION
  Report Type: 
  Country: None (occurrence: None)
  Receive Date: 20070124
  Receipt Date: 20060222
  Transmission Date: 20070707
  Serious: No
  Sender: FDA-Public Use
  Company Number: US-GLAXOSMITHKLINE-A0562988A

PATIENT
  Sex: Female

DRUGS (3)
  1. PAROXETINE HCL [Suspect]
     Indication: PANIC DISORDER
     Route: 048
  2. PAXIL CR [Suspect]
     Indication: PANIC DISORDER
     Route: 048
  3. XANAX [Concomitant]

REACTIONS (5)
  - DEPRESSION [None]
  - DRUG INEFFECTIVE [None]
  - FATIGUE [None]
  - LIBIDO DECREASED [None]
  - SOMNOLENCE [None]
